FAERS Safety Report 23596156 (Version 1)
Quarter: 2024Q1

REPORT INFORMATION
  Report Type: Spontaneous
  Country: CN (occurrence: CN)
  Receive Date: 20240305
  Receipt Date: 20240305
  Transmission Date: 20240409
  Serious: Yes (Hospitalization)
  Sender: FDA-Public Use
  Company Number: CN-Eisai-EC-2024-160507

PATIENT
  Age: 61 Year
  Sex: Male

DRUGS (1)
  1. LENVATINIB [Suspect]
     Active Substance: LENVATINIB
     Indication: Hepatic cancer
     Route: 048
     Dates: start: 20231213, end: 20240205

REACTIONS (3)
  - Rash [Recovering/Resolving]
  - Pain of skin [Unknown]
  - Skin disorder [Unknown]

NARRATIVE: CASE EVENT DATE: 20240205
